FAERS Safety Report 12202493 (Version 1)
Quarter: 2016Q1

REPORT INFORMATION
  Report Type: Spontaneous
  Country: US (occurrence: US)
  Receive Date: 20160323
  Receipt Date: 20160323
  Transmission Date: 20160526
  Serious: Yes (Other)
  Sender: FDA-Public Use
  Company Number: US-ABBVIE-16K-163-1585973-00

PATIENT
  Age: 34 Year
  Sex: Male

DRUGS (1)
  1. HUMIRA [Suspect]
     Active Substance: ADALIMUMAB
     Indication: CROHN^S DISEASE
     Route: 058
     Dates: start: 2012

REACTIONS (9)
  - Blood pressure increased [Not Recovered/Not Resolved]
  - Incorrect dose administered [Recovered/Resolved]
  - Anal fistula [Recovered/Resolved]
  - Anxiety [Recovering/Resolving]
  - Liquid product physical issue [Recovered/Resolved]
  - Device issue [Recovered/Resolved]
  - Proctalgia [Recovered/Resolved]
  - Insomnia [Recovering/Resolving]
  - Injection site haemorrhage [Recovered/Resolved]

NARRATIVE: CASE EVENT DATE: 2014
